FAERS Safety Report 7716421-5 (Version None)
Quarter: 2011Q3

REPORT INFORMATION
  Report Type: 
  Country: None (occurrence: None)
  Receive Date: 20110829
  Receipt Date: 20110822
  Transmission Date: 20111222
  Serious: Yes (Hospitalization)
  Sender: FDA-Public Use
  Company Number: PHEH2011US00882

PATIENT
  Sex: Male
  Weight: 42.585 kg

DRUGS (16)
  1. TOBI [Suspect]
     Indication: CYSTIC FIBROSIS
     Dosage: 300 MG, BID
     Dates: start: 20040820
  2. ZYRTEC [Concomitant]
     Dosage: 10 MG, QD
     Route: 048
     Dates: start: 20090113
  3. CLONAZEPAM [Concomitant]
     Dosage: 0.25 MG, BID
     Dates: start: 20110722
  4. AZITHROMYCIN [Concomitant]
     Dosage: 500 MG, UNK
     Dates: start: 20040820
  5. ACAPELLA [Concomitant]
     Dosage: 2 TIMES, QD
     Dates: start: 20080318
  6. MULTI-VITAMIN [Concomitant]
     Dosage: 1 DF, BID
     Route: 048
     Dates: start: 20110120
  7. NUTREN TUBE FEEDS [Concomitant]
     Dosage: 4 CANS PER NIGHT
     Dates: start: 20090113
  8. ZENPEP [Concomitant]
     Dosage: 20-5 WITH MEALS AND TUBE FEEDS, 4 WITH SNACKS
     Route: 048
     Dates: start: 20110120
  9. PULMOZYME [Concomitant]
     Dosage: 2.5 MG, QD
     Dates: start: 20040820
  10. FLONASE [Concomitant]
     Dosage: 2 SPRAYS EACH NOSTRIL, QD
     Dates: start: 20110120
  11. ALBUTEROL SULFATE AUTOHALER [Concomitant]
     Dosage: 2 PUFFS, BID
     Dates: start: 20110120
  12. TOBI [Suspect]
     Dosage: 300 MG, BID (28 DAYS ON AND 28 DAYS OFF)
     Dates: start: 20090114
  13. PAXIL [Concomitant]
     Dosage: 10 MG, QD
     Route: 048
     Dates: start: 20110722
  14. REGLAN [Concomitant]
     Dosage: UNK UKN, QHS
     Route: 048
     Dates: start: 20110811
  15. PROTONIX [Concomitant]
     Dosage: 40 MG, QD
     Route: 048
     Dates: start: 20110811
  16. ADVAIR DISKUS 100/50 [Concomitant]
     Dosage: 1 DF, BID
     Dates: start: 20051019

REACTIONS (4)
  - ANXIETY [None]
  - INFECTIVE PULMONARY EXACERBATION OF CYSTIC FIBROSIS [None]
  - UPPER RESPIRATORY TRACT INFECTION [None]
  - HYPOXIA [None]
